FAERS Safety Report 9587350 (Version 2)
Quarter: 2013Q4

REPORT INFORMATION
  Report Type: Spontaneous
  Country: GB (occurrence: GB)
  Receive Date: 20131003
  Receipt Date: 20131003
  Transmission Date: 20140711
  Serious: Yes (Other)
  Sender: FDA-Public Use
  Company Number: GB-TEVA-369534ISR

PATIENT
  Age: 64 Year
  Sex: Female

DRUGS (3)
  1. LERCANIDIPINE [Suspect]
     Indication: HYPERTENSION
     Dosage: 20 MILLIGRAM DAILY; 1 IN THE MORNING AND 1 AT NIGHT
     Route: 048
  2. SIMVASTATIN [Suspect]
     Dosage: 80 MILLIGRAM DAILY; 1 IN THE MORNING AND ONE AT NIGHT
     Route: 048
  3. CANDESARTAN CILEXETIL [Concomitant]

REACTIONS (3)
  - Myopathy [Not Recovered/Not Resolved]
  - Arthralgia [Not Recovered/Not Resolved]
  - Drug interaction [Not Recovered/Not Resolved]
